FAERS Safety Report 7181979-4 (Version None)
Quarter: 2010Q4

REPORT INFORMATION
  Report Type: 
  Country: None (occurrence: None)
  Receive Date: 20101221
  Receipt Date: 20100504
  Transmission Date: 20110411
  Serious: No
  Sender: FDA-Public Use
  Company Number: US-AMGEN-KDL410505

PATIENT

DRUGS (1)
  1. ENBREL [Suspect]
     Indication: PSORIATIC ARTHROPATHY
     Dosage: 12.5 MG, UNK
     Route: 058
     Dates: start: 20010801

REACTIONS (3)
  - EAR INFECTION VIRAL [None]
  - NASOPHARYNGITIS [None]
  - PSORIATIC ARTHROPATHY [None]
